FAERS Safety Report 9849218 (Version 3)
Quarter: 2014Q1

REPORT INFORMATION
  Report Type: Report from Study
  Country: US (occurrence: US)
  Receive Date: 20140128
  Receipt Date: 20140310
  Transmission Date: 20141002
  Serious: Yes (Hospitalization)
  Sender: FDA-Public Use
  Company Number: US-PFIZER INC-2014012815

PATIENT
  Age: 55 Year
  Sex: Male
  Weight: 87 kg

DRUGS (22)
  1. OXYCODONE HYDROCHLORIDE [Suspect]
     Indication: PAIN
     Dosage: 15 MG, EVERY 4 HRS
     Route: 048
     Dates: start: 20131215, end: 20131222
  2. NO SUBJECT DRUG [Suspect]
     Indication: ACUTE LYMPHOCYTIC LEUKAEMIA
     Dosage: NO DOSE GIVEN
     Route: 042
  3. AMLODIPINE [Concomitant]
     Indication: HYPERTENSION
     Dosage: 10 MG, 1X/DAY; MOST RECENT DOSE: 21DEC2013
     Route: 048
  4. DEXAMETHASONE [Concomitant]
     Indication: BONE PAIN
     Dosage: UNK
  5. DULOXETINE [Concomitant]
     Indication: NEUROPATHY PERIPHERAL
     Dosage: UNK
  6. FLUCONAZOLE [Concomitant]
     Indication: INFECTION PROPHYLAXIS
     Dosage: UNK
  7. HYDROXYUREA [Concomitant]
     Indication: LYMPHOBLAST COUNT INCREASED
     Dosage: UNK
  8. IMIPRAMINE [Concomitant]
     Dosage: UNK
  9. LORATADINE [Concomitant]
     Dosage: UNK
  10. MAGNESIUM OXIDE [Concomitant]
     Indication: PROPHYLAXIS
     Dosage: UNK
  11. METOPROLOL [Concomitant]
     Indication: HYPERTENSION
     Dosage: UNK
  12. OMEGA 3 [Concomitant]
     Indication: SUPPLEMENTATION THERAPY
     Dosage: UNK
  13. PYRIDOXINE [Concomitant]
     Indication: ANAEMIA PROPHYLAXIS
     Dosage: UNK
  14. BACTRIM [Concomitant]
     Indication: INFECTION PROPHYLAXIS
     Dosage: UNK
  15. URSODIOL [Concomitant]
     Dosage: UNK
  16. VALACYCLOVIR [Concomitant]
     Indication: PROPHYLAXIS
     Dosage: UNK
  17. ACETAMINOPHEN [Concomitant]
     Indication: PAIN
     Dosage: UNK
  18. HYDROMORPHONE [Concomitant]
     Indication: PAIN
     Dosage: 1 MG, PCA PUMP
     Route: 042
     Dates: start: 20131212, end: 20131214
  19. HYDROMORPHONE [Concomitant]
     Dosage: 2 MG, EVERY 3 HOURS
     Route: 048
     Dates: start: 20131220, end: 20131221
  20. HYDROMORPHONE [Concomitant]
     Dosage: 4 MG, ONCE
     Route: 048
     Dates: start: 20131221, end: 20131221
  21. HYDROMORPHONE [Concomitant]
     Dosage: 2 MG, ONCE
     Route: 048
     Dates: start: 20131221, end: 20131221
  22. HYDROMORPHONE [Concomitant]
     Dosage: 0.5 MG, EVERY 3 HOURS
     Route: 042
     Dates: start: 20131221, end: 20131222

REACTIONS (1)
  - Colonic pseudo-obstruction [Recovered/Resolved]
